FAERS Safety Report 8174230-X (Version None)
Quarter: 2012Q1

REPORT INFORMATION
  Report Type: 
  Country: None (occurrence: None)
  Receive Date: 20120229
  Receipt Date: 20120220
  Transmission Date: 20120608
  Serious: Yes (Other)
  Sender: FDA-Public Use
  Company Number: FR-JNJFOC-20110706368

PATIENT
  Age: 29 Year
  Sex: Female
  Weight: 55 kg

DRUGS (6)
  1. REMICADE [Suspect]
     Route: 042
     Dates: start: 20110515
  2. REMICADE [Suspect]
     Route: 042
     Dates: start: 20111031
  3. REMICADE [Suspect]
     Route: 042
     Dates: start: 20110113
  4. REMICADE [Suspect]
     Indication: CROHN'S DISEASE
     Route: 042
     Dates: start: 20110711
  5. REMICADE [Suspect]
     Route: 042
     Dates: start: 20110310
  6. REMICADE [Suspect]
     Route: 042
     Dates: start: 20110905

REACTIONS (2)
  - CAESAREAN SECTION [None]
  - MATERNAL EXPOSURE DURING PREGNANCY [None]
